FAERS Safety Report 13821232 (Version 4)
Quarter: 2018Q1

REPORT INFORMATION
  Report Type: Report from Study
  Country: US (occurrence: US)
  Receive Date: 20170801
  Receipt Date: 20180205
  Transmission Date: 20180508
  Serious: No
  Sender: FDA-Public Use
  Company Number: PHEH2017US023906

PATIENT
  Sex: Female

DRUGS (1)
  1. GILENYA [Suspect]
     Active Substance: FINGOLIMOD HYDROCHLORIDE
     Indication: MULTIPLE SCLEROSIS
     Dosage: 0.5 MG, QD
     Route: 048
     Dates: start: 20170726

REACTIONS (7)
  - Somnolence [Unknown]
  - Movement disorder [Unknown]
  - General physical health deterioration [Unknown]
  - Headache [Unknown]
  - Confusional state [Unknown]
  - Memory impairment [Unknown]
  - Photophobia [Unknown]
